FAERS Safety Report 8082346 (Version 3)
Quarter: 2014Q2

REPORT INFORMATION
  Report Type: Spontaneous
  Country: US (occurrence: US)
  Receive Date: 20110809
  Receipt Date: 20140606
  Transmission Date: 20141212
  Serious: Yes (Hospitalization)
  Sender: FDA-Public Use
  Company Number: US-GLAXOSMITHKLINE-A0860877A

PATIENT
  Age: 42 Year
  Sex: Female

DRUGS (2)
  1. AVANDIA [Suspect]
     Indication: DIABETES MELLITUS
     Dosage: 4MG TWICE PER DAY
     Route: 048
     Dates: start: 200309, end: 200709
  2. AVANDAMET [Suspect]
     Indication: DIABETES MELLITUS
     Route: 048
     Dates: start: 200505, end: 201002

REACTIONS (7)
  - Cerebral atrophy [Not Recovered/Not Resolved]
  - VIIth nerve paralysis [Unknown]
  - Aphasia [Unknown]
  - Dysarthria [Unknown]
  - Musculoskeletal disorder [Unknown]
  - Musculoskeletal disorder [Unknown]
  - Vertigo [Unknown]
